FAERS Safety Report 9403760 (Version 1)
Quarter: 2013Q3

REPORT INFORMATION
  Report Type: Spontaneous
  Country: BG (occurrence: None)
  Receive Date: 20130712
  Receipt Date: 20130712
  Transmission Date: 20140515
  Serious: Yes (Other)
  Sender: FDA-Public Use
  Company Number: NPIL/ISO/H/2013/54

PATIENT
  Sex: Male

DRUGS (1)
  1. ISOFLURANE [Suspect]
     Indication: ANAESTHESIA
     Dosage: IN UTERO

REACTIONS (4)
  - Caesarean section [None]
  - Foetal heart rate decreased [None]
  - Maternal drugs affecting foetus [None]
  - Nervous system disorder [None]
